FAERS Safety Report 5766849-8 (Version None)
Quarter: 2008Q2

REPORT INFORMATION
  Report Type: 
  Country: None (occurrence: None)
  Receive Date: 20080612
  Receipt Date: 20080609
  Transmission Date: 20081010
  Serious: Yes (Death, Other)
  Sender: FDA-Public Use
  Company Number: US-TEVA-172589USA

PATIENT
  Age: 33 Year
  Sex: Female

DRUGS (1)
  1. PROPOFOL [Suspect]
     Indication: SEDATION
     Route: 041

REACTIONS (2)
  - CARDIAC ARREST [None]
  - PROPOFOL INFUSION SYNDROME [None]
